FAERS Safety Report 24282873 (Version 1)
Quarter: 2024Q3

REPORT INFORMATION
  Report Type: Spontaneous
  Country: US (occurrence: US)
  Receive Date: 20240904
  Receipt Date: 20240904
  Transmission Date: 20241017
  Serious: Yes (Life-Threatening, Other)
  Sender: AMGEN
  Company Number: US-AMGEN-USASP2024171607

PATIENT
  Age: 71 Year
  Sex: Male

DRUGS (11)
  1. EPOETIN ALFA [Suspect]
     Active Substance: ERYTHROPOIETIN
     Indication: Anaemia
     Dosage: 40000 UNIT, Q12H
     Route: 042
  2. DARBEPOETIN ALFA [Suspect]
     Active Substance: DARBEPOETIN ALFA
     Indication: Anaemia
     Dosage: 300 MICROGRAM, QWK
     Route: 058
  3. ASPIRIN [Concomitant]
     Active Substance: ASPIRIN
     Dosage: 81 MILLIGRAM, QD
  4. CELEBREX [Concomitant]
     Active Substance: CELECOXIB
     Dosage: 100 MILLIGRAM, BID
  5. MIDAZOLAM [Concomitant]
     Active Substance: MIDAZOLAM
     Dosage: 2 MILLIGRAM
  6. ALBUMIN HUMAN [Concomitant]
     Active Substance: ALBUMIN HUMAN
  7. NOREPINEPHRINE [Concomitant]
     Active Substance: NOREPINEPHRINE\NOREPINEPHRINE BITARTRATE
  8. TRANEXAMIC ACID [Concomitant]
     Active Substance: TRANEXAMIC ACID
     Dosage: 3 MILLIGRAM/KILOGRAM, QH, INFUSION FOR A TOTAL DURATION OF 48 HOURS)
  9. IRON SUCROSE [Concomitant]
     Active Substance: IRON SUCROSE
     Dosage: 300 MILLIGRAM, QD FOR 5 DAYS
  10. FOLIC ACID [Concomitant]
     Active Substance: FOLIC ACID
     Dosage: 1 MILLIGRAM, QD
  11. CYANOCOBALAMIN [Concomitant]
     Active Substance: CYANOCOBALAMIN
     Dosage: 1000 MICROGRAM, QD

REACTIONS (2)
  - Confusional state [Recovering/Resolving]
  - Deep vein thrombosis [Recovered/Resolved]
